FAERS Safety Report 4561580-9 (Version None)
Quarter: 2005Q1

REPORT INFORMATION
  Report Type: 
  Country: None (occurrence: None)
  Receive Date: 20050121
  Receipt Date: 20041230
  Transmission Date: 20050727
  Serious: Yes (Hospitalization)
  Sender: FDA-Public Use
  Company Number: USA041287176

PATIENT
  Age: 81 Year
  Sex: Male

DRUGS (7)
  1. HUMULIN N [Suspect]
     Indication: DIABETES MELLITUS
     Dates: start: 19820101, end: 20040901
  2. NOVOLIN R [Concomitant]
  3. POTASSIUM CHLORIDE [Concomitant]
  4. COZAAR [Concomitant]
  5. AMARYL [Concomitant]
  6. WARFARIN [Concomitant]
  7. LIPITOR [Concomitant]

REACTIONS (5)
  - DIARRHOEA [None]
  - FEAR [None]
  - FLATULENCE [None]
  - PHARMACEUTICAL PRODUCT COMPLAINT [None]
  - TREATMENT NONCOMPLIANCE [None]
